FAERS Safety Report 11191662 (Version 1)
Quarter: 2015Q2

REPORT INFORMATION
  Report Type: Spontaneous
  Country: US (occurrence: None)
  Receive Date: 20150603
  Receipt Date: 20150603
  Transmission Date: 20150821
  Serious: No
  Sender: FDA-Public Use
  Company Number: 2015TASUS000760

PATIENT
  Age: 34 Year
  Sex: Female

DRUGS (8)
  1. HETLIOZ [Suspect]
     Active Substance: TASIMELTEON
     Indication: CIRCADIAN RHYTHM SLEEP DISORDER
     Dates: start: 20150204
  2. CREON [Concomitant]
     Active Substance: PANCRELIPASE AMYLASE\PANCRELIPASE LIPASE\PANCRELIPASE PROTEASE
  3. LIPOGEN (CHOLINE, INOSITOL, VITAMINS NOS) [Concomitant]
  4. TRIAMTERENE/HCTZ (HYDROCHLOROTHIAZIDE, TRIAMTERENE) [Concomitant]
  5. LEVOTHYROXINE SODIUM (LEVOTHYROXINE SODIUM) [Concomitant]
  6. FISH OIL (COD-LIVER OIL) [Concomitant]
  7. FINASTERIDE (FINASTERIDE) [Concomitant]
     Active Substance: FINASTERIDE
  8. VITAMIN A + D (ERGOCALCIFEROL, RETINOL) [Concomitant]

REACTIONS (2)
  - Drug ineffective [None]
  - Incorrect drug administration duration [None]
